FAERS Safety Report 15705377 (Version 1)
Quarter: 2018Q4

REPORT INFORMATION
  Report Type: Spontaneous
  Country: JP (occurrence: JP)
  Receive Date: 20181210
  Receipt Date: 20181210
  Transmission Date: 20190205
  Serious: Yes (Other)
  Sender: FDA-Public Use
  Company Number: JP-PFIZER INC-2018229930

PATIENT
  Age: 16 Year
  Sex: Male

DRUGS (10)
  1. BESPONSA [Suspect]
     Active Substance: INOTUZUMAB OZOGAMICIN
     Indication: ACUTE LYMPHOCYTIC LEUKAEMIA
     Dosage: 0.8 MG/M2, DAILY
     Route: 041
     Dates: start: 20180605, end: 20180605
  2. BESPONSA [Suspect]
     Active Substance: INOTUZUMAB OZOGAMICIN
     Dosage: 0.5 MG/M2, DAILY
     Route: 041
     Dates: start: 20181001, end: 20181001
  3. BESPONSA [Suspect]
     Active Substance: INOTUZUMAB OZOGAMICIN
     Dosage: 0.5 MG/M2, DAILY
     Route: 041
     Dates: start: 20180612, end: 20180612
  4. BESPONSA [Suspect]
     Active Substance: INOTUZUMAB OZOGAMICIN
     Dosage: 0.5 MG/M2, DAILY
     Dates: start: 20180713, end: 20180713
  5. BESPONSA [Suspect]
     Active Substance: INOTUZUMAB OZOGAMICIN
     Dosage: 0.5 MG/M2, DAILY
     Route: 041
     Dates: start: 20180903, end: 20180903
  6. TACROLIMUS. [Concomitant]
     Active Substance: TACROLIMUS
  7. BESPONSA [Suspect]
     Active Substance: INOTUZUMAB OZOGAMICIN
     Dosage: 0.5 MG/M2, DAILY
     Route: 041
     Dates: start: 20180619, end: 20180619
  8. BESPONSA [Suspect]
     Active Substance: INOTUZUMAB OZOGAMICIN
     Dosage: 0.5 MG/M2, DAILY
     Route: 041
     Dates: start: 20180704, end: 20180704
  9. BESPONSA [Suspect]
     Active Substance: INOTUZUMAB OZOGAMICIN
     Dosage: 0.5 MG/M2, DAILY
     Route: 041
     Dates: start: 20180723, end: 20180723
  10. BESPONSA [Suspect]
     Active Substance: INOTUZUMAB OZOGAMICIN
     Dosage: 0.5 MG/M2, DAILY
     Route: 041
     Dates: start: 20181029, end: 20181029

REACTIONS (11)
  - Rash [Recovered/Resolved]
  - Hepatic function abnormal [Not Recovered/Not Resolved]
  - Blood lactate dehydrogenase increased [Recovered/Resolved]
  - White blood cell count decreased [Recovered/Resolved]
  - Arthralgia [Recovering/Resolving]
  - Platelet count decreased [Recovering/Resolving]
  - Blood bilirubin increased [Unknown]
  - Infusion related reaction [Recovered/Resolved]
  - Product use issue [Unknown]
  - Alanine aminotransferase increased [Unknown]
  - Graft versus host disease [Unknown]

NARRATIVE: CASE EVENT DATE: 20180605
